FAERS Safety Report 17683094 (Version 4)
Quarter: 2020Q2

REPORT INFORMATION
  Report Type: Report from Study
  Country: None (occurrence: ES)
  Receive Date: 20200420
  Receipt Date: 20200601
  Transmission Date: 20200714
  Serious: Yes (Hospitalization)
  Sender: FDA-Public Use
  Company Number: ES-ABBVIE-20K-144-3368179-00

PATIENT
  Age: 76 Year
  Sex: Female

DRUGS (5)
  1. AMOXICILLIN. [Concomitant]
     Active Substance: AMOXICILLIN
     Indication: PRODUCT USED FOR UNKNOWN INDICATION
  2. BUPIVACAINE. [Concomitant]
     Active Substance: BUPIVACAINE
     Indication: PRODUCT USED FOR UNKNOWN INDICATION
  3. CHLORHEXIDINE [Concomitant]
     Active Substance: CHLORHEXIDINE
     Indication: PRODUCT USED FOR UNKNOWN INDICATION
  4. DUODOPA [Suspect]
     Active Substance: CARBIDOPA\LEVODOPA
     Dosage: MORNING DOSE 5.5 ML/HOUR,?CONTINUOUS DOSE IS AT 1.7 ML/HOUR
     Route: 050
     Dates: start: 20200416, end: 20200515
  5. DUODOPA [Suspect]
     Active Substance: CARBIDOPA\LEVODOPA
     Indication: PARKINSON^S DISEASE
     Dosage: MORNING DOSE 7 ML/HOUR,?CONTINUOUS DOSE 2.2 ML/HOUR
     Route: 050
     Dates: start: 20191030, end: 20200416

REACTIONS (13)
  - Abdominal pain [Unknown]
  - General physical health deterioration [Unknown]
  - Decubitus ulcer [Unknown]
  - Hypophagia [Recovered/Resolved]
  - Stoma site erythema [Unknown]
  - Stoma site pain [Unknown]
  - Nausea [Recovered/Resolved]
  - Vomiting [Recovered/Resolved]
  - Incorrect dose administered [Unknown]
  - Granuloma [Recovered/Resolved]
  - Wound [Unknown]
  - Bezoar [Unknown]
  - Treatment failure [Unknown]

NARRATIVE: CASE EVENT DATE: 2020
